FAERS Safety Report 10184456 (Version 3)
Quarter: 2014Q3

REPORT INFORMATION
  Report Type: Spontaneous
  Country: US (occurrence: US)
  Receive Date: 20140521
  Receipt Date: 20140703
  Transmission Date: 20150326
  Serious: Yes (Hospitalization, Other)
  Sender: FDA-Public Use
  Company Number: US-009507513-1405USA009488

PATIENT
  Sex: Male

DRUGS (2)
  1. MK-0000 [Suspect]
     Active Substance: INVESTIGATIONAL PRODUCT
     Dosage: UNK
     Route: 048
     Dates: start: 1997
  2. MK-0000 [Suspect]
     Active Substance: INVESTIGATIONAL PRODUCT
     Dosage: UNK
     Route: 048
     Dates: start: 201405

REACTIONS (6)
  - Pancreatic carcinoma [Recovered/Resolved]
  - Prostate cancer stage IV [Recovered/Resolved]
  - Bladder cancer [Unknown]
  - Renal disorder [Recovered/Resolved]
  - Cholecystectomy [Recovered/Resolved]
  - Chemotherapy [Recovered/Resolved]
